FAERS Safety Report 17075854 (Version 1)
Quarter: 2019Q4

REPORT INFORMATION
  Report Type: Spontaneous
  Country: CN (occurrence: CN)
  Receive Date: 20191126
  Receipt Date: 20191126
  Transmission Date: 20200122
  Serious: Yes (Other)
  Sender: FDA-Public Use
  Company Number: CN-CHEPLA-C20193085

PATIENT
  Age: 71 Year
  Sex: Female
  Weight: 70 kg

DRUGS (3)
  1. TEGRETOL [Suspect]
     Active Substance: CARBAMAZEPINE
     Indication: NEURALGIA
     Dosage: 100 MG, BID
     Route: 048
     Dates: start: 20190803, end: 20190807
  2. GANCICLOVIR. [Suspect]
     Active Substance: GANCICLOVIR
     Indication: PRODUCT USED FOR UNKNOWN INDICATION
     Route: 065
  3. GABAPENTIN. [Suspect]
     Active Substance: GABAPENTIN
     Indication: NEURALGIA
     Route: 065

REACTIONS (9)
  - Papule [Unknown]
  - Vulvar erosion [Unknown]
  - Erythema [Unknown]
  - Lip swelling [Unknown]
  - Stevens-Johnson syndrome [Recovering/Resolving]
  - Mucosal erosion [Unknown]
  - Erythema multiforme [Recovering/Resolving]
  - Oral mucosal blistering [Unknown]
  - Pruritus [Unknown]

NARRATIVE: CASE EVENT DATE: 20190807
